FAERS Safety Report 23986179 (Version 1)
Quarter: 2024Q2

REPORT INFORMATION
  Report Type: Spontaneous
  Country: US (occurrence: US)
  Receive Date: 20240618
  Receipt Date: 20240618
  Transmission Date: 20240716
  Serious: Yes (Hospitalization, Other)
  Sender: FDA-Public Use
  Company Number: US-BAYER-2024A085678

PATIENT
  Age: 79 Year
  Sex: Female

DRUGS (10)
  1. BAYER LOW DOSE [Suspect]
     Active Substance: ASPIRIN
  2. VYNDAMAX [Suspect]
     Active Substance: TAFAMIDIS
  3. TAFAMIDIS [Suspect]
     Active Substance: TAFAMIDIS
  4. UNSPECIFIED INGREDIENT [Concomitant]
     Active Substance: UNSPECIFIED INGREDIENT
  5. ANGIOTENSINE II [Concomitant]
  6. BUMETANIDE [Concomitant]
     Active Substance: BUMETANIDE
  7. METOPROLOL TARTRATE [Concomitant]
     Active Substance: METOPROLOL TARTRATE
  8. KEFLEX [Concomitant]
     Active Substance: CEPHALEXIN
  9. VITAMIN D3 [Concomitant]
     Active Substance: CHOLECALCIFEROL
  10. NITROGLYCERIN [Concomitant]
     Active Substance: NITROGLYCERIN

REACTIONS (4)
  - Rectal haemorrhage [Recovered/Resolved]
  - Epistaxis [Recovered/Resolved]
  - Mouth haemorrhage [Recovered/Resolved]
  - Eye haemorrhage [Recovered/Resolved]
